FAERS Safety Report 6087176-8 (Version None)
Quarter: 2009Q1

REPORT INFORMATION
  Report Type: 
  Country: None (occurrence: None)
  Receive Date: 20090223
  Receipt Date: 20090212
  Transmission Date: 20090719
  Serious: Yes (Other)
  Sender: FDA-Public Use
  Company Number: JP-MERCK-0902USA02761

PATIENT
  Age: 31 Year
  Sex: Male
  Weight: 74 kg

DRUGS (5)
  1. DECADRON [Suspect]
     Indication: PROPHYLAXIS OF NAUSEA AND VOMITING
     Route: 065
  2. DECADRON [Suspect]
     Route: 065
  3. BLEOMYCIN SULFATE [Concomitant]
     Indication: TESTIS CANCER
     Route: 065
  4. ETOPOSIDE [Concomitant]
     Indication: TESTIS CANCER
     Route: 065
  5. CISPLATIN [Concomitant]
     Route: 051

REACTIONS (2)
  - CEREBRAL INFARCTION [None]
  - OVERDOSE [None]
